FAERS Safety Report 17727316 (Version 1)
Quarter: 2020Q2

REPORT INFORMATION
  Report Type: Spontaneous
  Country: IT (occurrence: IT)
  Receive Date: 20200430
  Receipt Date: 20200430
  Transmission Date: 20200714
  Serious: Yes (Other)
  Sender: FDA-Public Use
  Company Number: IT-SUN PHARMACEUTICAL INDUSTRIES LTD-2020R1-245030

PATIENT
  Age: 16 Year
  Sex: Female

DRUGS (2)
  1. ALLOPREGNANOLONE [Suspect]
     Active Substance: BREXANOLONE
     Indication: STATUS EPILEPTICUS
     Dosage: UNK
     Route: 065
  2. DEXAMETHASONE. [Suspect]
     Active Substance: DEXAMETHASONE
     Indication: STATUS EPILEPTICUS
     Dosage: UNK
     Route: 065

REACTIONS (1)
  - Disease recurrence [Unknown]
